FAERS Safety Report 18747197 (Version 1)
Quarter: 2021Q1

REPORT INFORMATION
  Report Type: Report from Study
  Country: US (occurrence: US)
  Receive Date: 20210115
  Receipt Date: 20210115
  Transmission Date: 20210419
  Serious: Yes (Other)
  Sender: FDA-Public Use
  Company Number: US-ASTRAZENECA-2021A005959

PATIENT
  Sex: Male
  Weight: 28.1 kg

DRUGS (5)
  1. ONDANSETRON [Concomitant]
     Active Substance: ONDANSETRON
  2. LIDOCAINE?PRILOCAINE [Concomitant]
     Active Substance: LIDOCAINE\PRILOCAINE
  3. BEVACIZUMAB. [Concomitant]
     Active Substance: BEVACIZUMAB
  4. KOSELUGO [Suspect]
     Active Substance: SELUMETINIB
     Indication: BRAIN NEOPLASM MALIGNANT
     Route: 048
     Dates: start: 20200831
  5. KOSELUGO [Suspect]
     Active Substance: SELUMETINIB
     Indication: BRAIN NEOPLASM MALIGNANT
     Route: 048
     Dates: start: 20200831

REACTIONS (1)
  - Blindness [Unknown]
